FAERS Safety Report 13770392 (Version 1)
Quarter: 2017Q3

REPORT INFORMATION
  Report Type: Spontaneous
  Country: HU (occurrence: HU)
  Receive Date: 20170719
  Receipt Date: 20170719
  Transmission Date: 20171127
  Serious: Yes (Other)
  Sender: FDA-Public Use
  Company Number: HU-B.I. PHARMACEUTICALS,INC./RIDGEFIELD-2017-BI-033966

PATIENT
  Age: 59 Year
  Sex: Female

DRUGS (2)
  1. GILOTRIF [Suspect]
     Active Substance: AFATINIB
     Indication: EGFR GENE MUTATION
     Route: 065
     Dates: start: 201312
  2. GILOTRIF [Suspect]
     Active Substance: AFATINIB
     Indication: ADRENAL GLAND CANCER

REACTIONS (2)
  - Hand fracture [Unknown]
  - Road traffic accident [Unknown]
